FAERS Safety Report 8616669-1 (Version None)
Quarter: 2012Q3

REPORT INFORMATION
  Report Type: 
  Country: None (occurrence: None)
  Receive Date: 20120823
  Receipt Date: 20120808
  Transmission Date: 20120928
  Serious: Yes (Hospitalization, Other)
  Sender: FDA-Public Use
  Company Number: FR-PFIZER INC-2012197403

PATIENT
  Age: 70 Year
  Sex: Male

DRUGS (13)
  1. TAMSULOSIN HYDROCHLORIDE [Concomitant]
     Dosage: UNK
  2. HYDROCORTISONE [Concomitant]
     Dosage: UNK
  3. OXEOL [Concomitant]
     Dosage: UNK
  4. RAMIPRIL [Suspect]
     Indication: PRODUCT USED FOR UNKNOWN INDICATION
     Dosage: 10 MG, DAILY
     Route: 048
     Dates: start: 20100101, end: 20110107
  5. NOVOLOG MIX 70/30 [Concomitant]
     Dosage: UNK
  6. ACETAMINOPHEN [Concomitant]
     Dosage: UNK
  7. ZOCOR [Concomitant]
     Dosage: UNK
     Dates: start: 20100101, end: 20110107
  8. SPIRIVA [Concomitant]
     Dosage: UNK
  9. SYMBICORT [Concomitant]
     Dosage: UNK
  10. DESLORATADINE [Concomitant]
     Dosage: UNK
  11. ALLOPURINOL [Concomitant]
     Dosage: UNK
     Dates: start: 20100101, end: 20110107
  12. IRBESARTAN [Suspect]
     Indication: PRODUCT USED FOR UNKNOWN INDICATION
     Dosage: 300 MG, DAILY
     Route: 048
     Dates: start: 20100101, end: 20110107
  13. NOVORAPID [Concomitant]
     Dosage: UNK

REACTIONS (4)
  - TACHYCARDIA [None]
  - HYPOTENSION [None]
  - RENAL FAILURE ACUTE [None]
  - GASTROENTERITIS NOROVIRUS [None]
